FAERS Safety Report 9795047 (Version 2)
Quarter: 2014Q1

REPORT INFORMATION
  Report Type: Report from Study
  Country: US (occurrence: US)
  Receive Date: 20140102
  Receipt Date: 20140108
  Transmission Date: 20141002
  Serious: Yes (Death)
  Sender: FDA-Public Use
  Company Number: US-ROCHE-1328724

PATIENT
  Sex: Male

DRUGS (3)
  1. ZELBORAF [Suspect]
     Indication: METASTATIC MALIGNANT MELANOMA
     Route: 065
     Dates: start: 20130703, end: 20131217
  2. ZELBORAF [Suspect]
     Indication: MALIGNANT MELANOMA
  3. ZELBORAF [Suspect]
     Indication: METASTASES TO LIVER

REACTIONS (1)
  - Metastatic malignant melanoma [Fatal]
